FAERS Safety Report 6345810-9 (Version None)
Quarter: 2009Q3

REPORT INFORMATION
  Report Type: 
  Country: None (occurrence: None)
  Receive Date: 20090909
  Receipt Date: 20090828
  Transmission Date: 20100115
  Serious: Yes (Hospitalization)
  Sender: FDA-Public Use
  Company Number: ES-ELI_LILLY_AND_COMPANY-ES200909001420

PATIENT
  Sex: Female
  Weight: 69 kg

DRUGS (3)
  1. PEMETREXED [Suspect]
     Indication: NON-SMALL CELL LUNG CANCER
     Dosage: 852 MG EVERY 21 DAYS
     Route: 042
     Dates: start: 20090713
  2. CETUXIMAB [Suspect]
     Indication: NON-SMALL CELL LUNG CANCER
     Dosage: 426 MG, WEEKLY (1/W)
     Route: 042
     Dates: start: 20090713
  3. CISPLATIN [Suspect]
     Indication: NON-SMALL CELL LUNG CANCER
     Dosage: 128 MG EVERY 21 DAYS
     Route: 042
     Dates: start: 20090713

REACTIONS (1)
  - PULMONARY EMBOLISM [None]
